APPROVED DRUG PRODUCT: HEPARIN SODIUM
Active Ingredient: HEPARIN SODIUM
Strength: 1,000 UNITS/ML
Dosage Form/Route: INJECTABLE;INJECTION
Application: A214804 | Product #001 | TE Code: AP
Applicant: BE PHARMACEUTICALS AG
Approved: Dec 29, 2020 | RLD: No | RS: No | Type: RX